FAERS Safety Report 8447436-X (Version None)
Quarter: 2012Q2

REPORT INFORMATION
  Report Type: 
  Country: None (occurrence: None)
  Receive Date: 20120619
  Receipt Date: 20120611
  Transmission Date: 20120825
  Serious: Yes (Hospitalization)
  Sender: FDA-Public Use
  Company Number: US-JNJFOC-20120406394

PATIENT
  Sex: Female
  Weight: 72.58 kg

DRUGS (7)
  1. LEVOTHYROXINE SODIUM [Concomitant]
     Indication: THYROID DISORDER
  2. ZOLOFT [Concomitant]
     Indication: DEPRESSION
  3. DIGOXIN [Concomitant]
     Indication: ATRIAL FIBRILLATION
  4. METHADONE HCL [Concomitant]
     Indication: SUBSTANCE ABUSE
  5. TRAMADOL HCL [Concomitant]
     Indication: OSTEOARTHRITIS
  6. SOTALOL HYDROCHLORIDE [Concomitant]
     Indication: HYPERTENSION
  7. XARELTO [Suspect]
     Indication: ATRIAL FIBRILLATION
     Route: 048
     Dates: start: 20120209, end: 20120402

REACTIONS (1)
  - PERICARDIAL EFFUSION [None]
